FAERS Safety Report 7370004-8 (Version None)
Quarter: 2011Q1

REPORT INFORMATION
  Report Type: 
  Country: None (occurrence: None)
  Receive Date: 20110323
  Receipt Date: 20110314
  Transmission Date: 20110831
  Serious: Yes (Hospitalization)
  Sender: FDA-Public Use
  Company Number: BR-US-EMD SERONO, INC.-7020198

PATIENT
  Sex: Female

DRUGS (2)
  1. REBIF [Suspect]
     Route: 058
     Dates: start: 20091001
  2. REBIF [Suspect]
     Indication: RELAPSING-REMITTING MULTIPLE SCLEROSIS
     Route: 058
     Dates: start: 20080401, end: 20091001

REACTIONS (5)
  - ARRHYTHMIA [None]
  - MALAISE [None]
  - PYREXIA [None]
  - SUPRAVENTRICULAR TACHYCARDIA [None]
  - INJECTION SITE ERYTHEMA [None]
